FAERS Safety Report 10148857 (Version 2)
Quarter: 2014Q2

REPORT INFORMATION
  Report Type: Spontaneous
  Country: US (occurrence: US)
  Receive Date: 20140502
  Receipt Date: 20140508
  Transmission Date: 20141212
  Serious: Yes (Life-Threatening, Hospitalization, Disabling, Other)
  Sender: FDA-Public Use
  Company Number: US-009507513-1404USA014523

PATIENT
  Age: 46 Year
  Sex: Male

DRUGS (3)
  1. ISENTRESS [Suspect]
     Indication: ANTIVIRAL TREATMENT
     Dosage: 400 MG, BID
     Route: 048
  2. TRAVAD (SODIUM CITRATE (+) SODIUM PHOSPHATE, TRIBASIC) [Concomitant]
  3. MEPRON (ATOVAQUONE) [Concomitant]

REACTIONS (4)
  - Convulsion [Unknown]
  - Central nervous system infection [Unknown]
  - Progressive multifocal leukoencephalopathy [Unknown]
  - Dysphagia [Unknown]
